FAERS Safety Report 10204050 (Version 1)
Quarter: 2014Q2

REPORT INFORMATION
  Report Type: Spontaneous
  Country: HU (occurrence: HU)
  Receive Date: 20140529
  Receipt Date: 20140529
  Transmission Date: 20141212
  Serious: Yes (Hospitalization)
  Sender: FDA-Public Use
  Company Number: HU-SA-2014SA065398

PATIENT
  Age: 68 Year
  Sex: Female

DRUGS (2)
  1. CLOPIDOGREL BISULFATE [Suspect]
     Indication: ANTICOAGULANT THERAPY
     Route: 065
  2. WARFARIN SODIUM [Suspect]
     Indication: ANTICOAGULANT THERAPY
     Route: 065

REACTIONS (7)
  - Cystitis haemorrhagic [Unknown]
  - Haematuria [Unknown]
  - Bleeding time prolonged [Unknown]
  - Inflammatory marker increased [Unknown]
  - International normalised ratio increased [Unknown]
  - Renal impairment [Unknown]
  - Anaemia [Unknown]
